FAERS Safety Report 9903208 (Version 1)
Quarter: 2014Q1

REPORT INFORMATION
  Report Type: Spontaneous
  Country: US (occurrence: US)
  Receive Date: 20140217
  Receipt Date: 20140217
  Transmission Date: 20141002
  Serious: No
  Sender: FDA-Public Use
  Company Number: US-ASTRAZENECA-2013SE56229

PATIENT
  Age: 64 Year
  Sex: Female
  Weight: 70.3 kg

DRUGS (6)
  1. ATENOLOL [Suspect]
     Route: 048
  2. TOPROL XL [Suspect]
     Indication: SUPRAVENTRICULAR TACHYCARDIA
     Route: 048
  3. TOPROL XL [Suspect]
     Indication: SUPRAVENTRICULAR TACHYCARDIA
     Route: 048
  4. TOPROL XL [Suspect]
     Indication: SUPRAVENTRICULAR TACHYCARDIA
     Route: 048
  5. TOPROL XL [Suspect]
     Indication: SUPRAVENTRICULAR TACHYCARDIA
     Dosage: GENERIC
     Route: 048
  6. TOPROL XL [Suspect]
     Indication: SUPRAVENTRICULAR TACHYCARDIA
     Route: 048
     Dates: start: 201303

REACTIONS (4)
  - Alopecia [Unknown]
  - Somnolence [Recovered/Resolved]
  - Off label use [Not Recovered/Not Resolved]
  - Off label use [Not Recovered/Not Resolved]
